FAERS Safety Report 6814982-1 (Version None)
Quarter: 2010Q3

REPORT INFORMATION
  Report Type: 
  Country: None (occurrence: None)
  Receive Date: 20100702
  Receipt Date: 20100628
  Transmission Date: 20110219
  Serious: Yes (Death)
  Sender: FDA-Public Use
  Company Number: FR-GILEAD-2010-0030101

PATIENT
  Sex: Female

DRUGS (7)
  1. VIREAD [Suspect]
     Indication: HIV INFECTION
     Dates: start: 20070101
  2. VIDEX [Suspect]
     Indication: HIV INFECTION
     Route: 048
  3. NORVIR [Suspect]
     Indication: HIV INFECTION
     Dates: start: 20070101
  4. REYATAZ [Suspect]
     Indication: HIV INFECTION
     Route: 048
     Dates: start: 20070101
  5. REBETOL [Suspect]
     Indication: HEPATITIS C
     Route: 048
     Dates: start: 20090930
  6. VIRAFERONPEG [Suspect]
     Indication: HEPATITIS C
     Route: 048
     Dates: start: 20091107
  7. COTRIM [Concomitant]

REACTIONS (1)
  - METABOLIC ACIDOSIS [None]
